FAERS Safety Report 16035210 (Version 2)
Quarter: 2019Q2

REPORT INFORMATION
  Report Type: Spontaneous
  Country: US (occurrence: US)
  Receive Date: 20190305
  Receipt Date: 20190426
  Transmission Date: 20190711
  Serious: Yes (Other)
  Sender: FDA-Public Use
  Company Number: US-BAYER-2019-045119

PATIENT
  Age: 37 Year
  Sex: Female
  Weight: 66.21 kg

DRUGS (2)
  1. MIRENA [Suspect]
     Active Substance: LEVONORGESTREL
     Indication: CONTRACEPTION
     Dosage: 20 MCG/24HR, CONT
     Route: 015
     Dates: start: 20190116, end: 20190219
  2. MIRENA [Suspect]
     Active Substance: LEVONORGESTREL
     Indication: CONTRACEPTION

REACTIONS (4)
  - Device issue [None]
  - Device expulsion [Recovered/Resolved]
  - Genital haemorrhage [None]
  - Ovarian cyst [None]

NARRATIVE: CASE EVENT DATE: 20190219
